FAERS Safety Report 23600480 (Version 1)
Quarter: 2024Q1

REPORT INFORMATION
  Report Type: Spontaneous
  Country: US (occurrence: US)
  Receive Date: 20240306
  Receipt Date: 20240306
  Transmission Date: 20240410
  Serious: Yes (Other)
  Sender: FDA-Public Use
  Company Number: US-MLMSERVICE-20240215-4836165-1

PATIENT

DRUGS (2)
  1. HALOPERIDOL [Suspect]
     Active Substance: HALOPERIDOL
     Indication: Schizophrenia
     Route: 030
  2. LORAZEPAM [Concomitant]
     Active Substance: LORAZEPAM
     Indication: Catatonia
     Dosage: 1 MILLIGRAM, Q6H
     Route: 048

REACTIONS (2)
  - Condition aggravated [Recovering/Resolving]
  - Catatonia [Recovering/Resolving]
